FAERS Safety Report 17397201 (Version 2)
Quarter: 2020Q2

REPORT INFORMATION
  Report Type: Report from Study
  Country: US (occurrence: US)
  Receive Date: 20200210
  Receipt Date: 20200415
  Transmission Date: 20200713
  Serious: Yes (Life-Threatening, Other)
  Sender: FDA-Public Use
  Company Number: PHHY2018US058364

PATIENT
  Age: 9 Year
  Sex: Male

DRUGS (1)
  1. KYMRIAH [Suspect]
     Active Substance: TISAGENLECLEUCEL
     Indication: ACUTE LYMPHOCYTIC LEUKAEMIA
     Dosage: 1 DF, ONCE/SINGLE
     Route: 042
     Dates: start: 20180312, end: 20180312

REACTIONS (8)
  - Hypotension [Recovered/Resolved]
  - Pupils unequal [Recovered/Resolved]
  - Hypoxia [Recovered/Resolved]
  - Unresponsive to stimuli [Recovered/Resolved]
  - Pyrexia [Unknown]
  - Septic shock [Recovered/Resolved]
  - Cytokine release syndrome [Recovered/Resolved]
  - Tachycardia [Recovered/Resolved]

NARRATIVE: CASE EVENT DATE: 20180313
